FAERS Safety Report 8990894 (Version 4)
Quarter: 2013Q3

REPORT INFORMATION
  Report Type: Spontaneous
  Country: IE (occurrence: IE)
  Receive Date: 20121231
  Receipt Date: 20130712
  Transmission Date: 20140515
  Serious: Yes (Hospitalization)
  Sender: FDA-Public Use
  Company Number: PHFR2012IE006655

PATIENT
  Age: 60 Year
  Sex: Female

DRUGS (6)
  1. CLOZARIL [Suspect]
     Indication: SCHIZOPHRENIA
     Dosage: 425 MG, (125 MG MANE + 300 MG NOCTE)
     Route: 048
     Dates: start: 20010701
  2. FLAGYL [Concomitant]
  3. HALOPERIDOL [Concomitant]
     Indication: SCHIZOPHRENIA
     Dosage: 5 MG, UNK
     Route: 048
  4. CLONAZEPAM [Concomitant]
     Indication: SCHIZOPHRENIA
     Dosage: 0.5 MG, BID
     Route: 048
  5. PROCYCLIDINE [Concomitant]
     Indication: EXTRAPYRAMIDAL DISORDER
     Dosage: 5 MG, UNK
     Route: 048
  6. GINSENG [Concomitant]
     Dosage: UNK

REACTIONS (6)
  - Colitis [Recovered/Resolved]
  - Diarrhoea [Recovered/Resolved]
  - Abdominal pain lower [Recovered/Resolved]
  - Diverticulitis [Recovered/Resolved]
  - White blood cell count increased [Recovered/Resolved]
  - Neutrophil count increased [Recovered/Resolved]
